FAERS Safety Report 9993013 (Version 1)
Quarter: 2014Q1

REPORT INFORMATION
  Report Type: Spontaneous
  Country: GB (occurrence: GB)
  Receive Date: 20140310
  Receipt Date: 20140310
  Transmission Date: 20141002
  Serious: Yes (Hospitalization)
  Sender: FDA-Public Use
  Company Number: GB-WATSON-2014-03923

PATIENT
  Age: 70 Year
  Sex: Female

DRUGS (3)
  1. PACLITAXEL (UNKNOWN) [Suspect]
     Indication: OVARIAN CANCER
     Dosage: 175 MG/M2, 1/ THREE WEEKS
     Route: 042
     Dates: start: 20130925, end: 20131106
  2. CARBOPLATIN (UNKNOWN) [Suspect]
     Indication: OVARIAN CANCER
     Dosage: UNK,1/3 WEEKS, AUC 5
     Route: 042
     Dates: start: 20130925, end: 20131106
  3. AVASTIN /01555201/ [Suspect]
     Indication: OVARIAN CANCER
     Dosage: 15 MG/KG, 1/ THREE WEEKS
     Route: 042
     Dates: start: 20131016, end: 20131016

REACTIONS (2)
  - Colonic abscess [Not Recovered/Not Resolved]
  - Intestinal perforation [Not Recovered/Not Resolved]
